FAERS Safety Report 25700294 (Version 3)
Quarter: 2025Q4

REPORT INFORMATION
  Report Type: Spontaneous
  Country: US (occurrence: US)
  Receive Date: 20250819
  Receipt Date: 20251214
  Transmission Date: 20260119
  Serious: No
  Sender: DAIICHI
  Company Number: US-DAIICHI SANKYO, INC.-DS-2025-158813-USAA

PATIENT
  Age: 13 Year
  Sex: Female

DRUGS (2)
  1. TURALIO [Suspect]
     Active Substance: PEXIDARTINIB HYDROCHLORIDE
     Indication: Connective tissue neoplasm
     Dosage: 250 MG, BID (250 MG TWICE DAILY)
     Route: 048
     Dates: start: 20110825
  2. TURALIO [Suspect]
     Active Substance: PEXIDARTINIB HYDROCHLORIDE
     Indication: Soft tissue neoplasm
     Dosage: 250 MG, BID (250 MG TWICE DAILY)
     Route: 048
     Dates: start: 20250715

REACTIONS (3)
  - Headache [Not Recovered/Not Resolved]
  - Hair colour changes [Not Recovered/Not Resolved]
  - Off label use [Not Recovered/Not Resolved]

NARRATIVE: CASE EVENT DATE: 20250715
